FAERS Safety Report 19609168 (Version 1)
Quarter: 2021Q3

REPORT INFORMATION
  Report Type: Spontaneous
  Country: US (occurrence: US)
  Receive Date: 20210726
  Receipt Date: 20210726
  Transmission Date: 20211014
  Serious: Yes (Other)
  Sender: FDA-Public Use
  Company Number: US-CELGENEUS-USA-20210703915

PATIENT
  Age: 64 Year
  Sex: Male
  Weight: 77.09 kg

DRUGS (1)
  1. REVLIMID [Suspect]
     Active Substance: LENALIDOMIDE
     Indication: PLASMA CELL MYELOMA
     Dosage: 25 MILLIGRAM
     Route: 048
     Dates: start: 20210714

REACTIONS (2)
  - Pharyngeal swelling [Unknown]
  - Spinal stenosis [Unknown]

NARRATIVE: CASE EVENT DATE: 202107
